FAERS Safety Report 5451679-7 (Version None)
Quarter: 2007Q3

REPORT INFORMATION
  Report Type: 
  Country: None (occurrence: None)
  Receive Date: 20070803
  Receipt Date: 20070503
  Transmission Date: 20080115
  Serious: Yes (Other)
  Sender: FDA-Public Use
  Company Number: 36727

PATIENT
  Age: 48 Year
  Sex: Male
  Weight: 111.1313 kg

DRUGS (1)
  1. PROPOFOL [Suspect]
     Indication: ANAESTHESIA
     Dosage: 220MG/OVER30/IV
     Route: 042
     Dates: start: 20070430

REACTIONS (3)
  - BACK PAIN [None]
  - CHILLS [None]
  - MYALGIA [None]
